FAERS Safety Report 16538721 (Version 2)
Quarter: 2025Q3

REPORT INFORMATION
  Report Type: Spontaneous
  Country: BR (occurrence: BR)
  Receive Date: 20190708
  Receipt Date: 20250708
  Transmission Date: 20251021
  Serious: Yes (Other)
  Sender: AUROBINDO
  Company Number: BR-AUROBINDO-AUR-APL-2019-038848

PATIENT
  Age: 70 Year
  Sex: Male

DRUGS (16)
  1. MIRTAZAPINE [Suspect]
     Active Substance: MIRTAZAPINE
     Indication: Psychotic disorder
     Dosage: 30 MILLIGRAM, ONCE A DAY, EVERY NIGHT
     Route: 065
  2. QUETIAPINE [Suspect]
     Active Substance: QUETIAPINE
     Indication: Psychotic disorder
     Dosage: 100 MILLIGRAM, TWO TIMES A DAY
     Route: 065
  3. QUETIAPINE [Suspect]
     Active Substance: QUETIAPINE
     Route: 065
  4. QUETIAPINE [Suspect]
     Active Substance: QUETIAPINE
     Dosage: 100 MILLIGRAM, FOUR TIMES/DAY, ONCE TO THREE TIMES DAILY AS NEEDED TO CONTROL PSYCHIATRIC SYMPTOMS
     Route: 065
  5. QUETIAPINE [Suspect]
     Active Substance: QUETIAPINE
     Dosage: 100 MILLIGRAM, ONCE TO THREE TIMES DAILY AS NEEDED TO CONTROL PSYCHIATRIC SYMPTOMS
  6. CABERGOLINE [Concomitant]
     Active Substance: CABERGOLINE
     Indication: Prolactin-producing pituitary tumour
     Dosage: 1.5 MILLIGRAM, EVERY WEEK
     Route: 065
  7. CABERGOLINE [Concomitant]
     Active Substance: CABERGOLINE
     Dosage: 3.5 MILLIGRAM, EVERY WEEK, FOR 48 MONTHS
     Route: 065
  8. CABERGOLINE [Concomitant]
     Active Substance: CABERGOLINE
     Dosage: 1 MILLIGRAM, EVERY WEEK
     Route: 065
  9. METFORMIN [Concomitant]
     Active Substance: METFORMIN HYDROCHLORIDE
     Indication: Type 2 diabetes mellitus
     Route: 065
  10. LEVOTHYROXINE [Concomitant]
     Active Substance: LEVOTHYROXINE
     Indication: Central hypothyroidism
     Route: 065
  11. BISOPROLOL FUMARATE [Concomitant]
     Active Substance: BISOPROLOL FUMARATE
     Indication: Hypertension
     Route: 065
  12. VILDAGLIPTIN [Concomitant]
     Active Substance: VILDAGLIPTIN
     Indication: Type 2 diabetes mellitus
     Route: 065
  13. POTASSIUM CHLORIDE [Concomitant]
     Active Substance: POTASSIUM CHLORIDE
     Indication: Hypertension
     Dosage: 600 MILLIGRAM, TWO TIMES A DAY
     Route: 065
  14. CAPTOPRIL [Concomitant]
     Active Substance: CAPTOPRIL
     Indication: Hypertension
     Dosage: 50 MILLIGRAM, TWO TIMES A DAY
     Route: 065
  15. INDAPAMIDE [Concomitant]
     Active Substance: INDAPAMIDE
     Indication: Hypertension
     Route: 065
  16. AMLODIPINE [Concomitant]
     Active Substance: AMLODIPINE BESYLATE
     Indication: Hypertension
     Route: 065

REACTIONS (1)
  - Blood prolactin increased [Recovered/Resolved]
